FAERS Safety Report 8310201-8 (Version None)
Quarter: 2012Q2

REPORT INFORMATION
  Report Type: 
  Country: None (occurrence: None)
  Receive Date: 20120425
  Receipt Date: 20120418
  Transmission Date: 20120825
  Serious: Yes (Hospitalization)
  Sender: FDA-Public Use
  Company Number: US-BAYER-2012-039233

PATIENT
  Age: 21 Year
  Sex: Female

DRUGS (13)
  1. FLORADIL [Concomitant]
     Dosage: 1 PUFF B.I.D.
  2. PROTONIX [Concomitant]
     Dosage: 40 MG DAILY,
  3. KLONOPIN [Concomitant]
     Dosage: 0.5 MG, BID
  4. LISINOPRIL AND HYDROCHLOROTHIAZIDE [Concomitant]
     Dosage: 10/12.5 DAILY
  5. PROTONIX [Concomitant]
     Dosage: 40 MG, QD
  6. TRILEPTAL [Concomitant]
     Dosage: 300 MG, BID
  7. YASMIN [Suspect]
  8. FLOVENT [Concomitant]
     Dosage: 220 ?G, BID
  9. LYRICA [Concomitant]
     Dosage: 300 MG, BID
  10. TRILEPTAL [Concomitant]
     Dosage: 300 MG, BID
  11. NEURONTIN [Concomitant]
  12. FLEXERIL [Concomitant]
     Dosage: 10 MG, TID
  13. DILAUDID [Concomitant]

REACTIONS (2)
  - PULMONARY INFARCTION [None]
  - PULMONARY EMBOLISM [None]
